FAERS Safety Report 19107135 (Version 1)
Quarter: 2021Q2

REPORT INFORMATION
  Report Type: Not Available
  Country: None (occurrence: None)
  Receive Date: 20210408
  Receipt Date: 20210408
  Transmission Date: 20210717
  Serious: No
  Sender: FDA-Public Use
  Company Number: US-AKORN-163359

PATIENT
  Age: 89 Year
  Sex: Male

DRUGS (1)
  1. COSOPT PF [Suspect]
     Active Substance: DORZOLAMIDE HYDROCHLORIDE\TIMOLOL MALEATE

REACTIONS (3)
  - Vision blurred [Recovered/Resolved]
  - Abnormal sensation in eye [None]
  - Eye irritation [Recovered/Resolved]

NARRATIVE: CASE EVENT DATE: 20210308
